FAERS Safety Report 8070702-7 (Version None)
Quarter: 2012Q1

REPORT INFORMATION
  Report Type: 
  Country: None (occurrence: None)
  Receive Date: 20120125
  Receipt Date: 20120123
  Transmission Date: 20120608
  Serious: Yes (Death, Other)
  Sender: FDA-Public Use
  Company Number: PHEH2011US012426

PATIENT
  Sex: Female

DRUGS (1)
  1. EXJADE [Suspect]
     Indication: IRON OVERLOAD
     Dosage: 1250 MG DAILY
     Route: 048
     Dates: start: 20070616, end: 20100921

REACTIONS (2)
  - CYTOMEGALOVIRUS INFECTION [None]
  - DEATH [None]
